FAERS Safety Report 21509178 (Version 2)
Quarter: 2022Q4

REPORT INFORMATION
  Report Type: Spontaneous
  Country: BR (occurrence: BR)
  Receive Date: 20221026
  Receipt Date: 20221103
  Transmission Date: 20230113
  Serious: Yes (Other)
  Sender: FDA-Public Use
  Company Number: BR-TAKEDA-2022TUS078457

PATIENT
  Sex: Female

DRUGS (6)
  1. ENTYVIO [Suspect]
     Active Substance: VEDOLIZUMAB
     Indication: Colitis ulcerative
     Dosage: 300 MILLIGRAM
     Route: 042
     Dates: start: 202008
  2. ENTYVIO [Suspect]
     Active Substance: VEDOLIZUMAB
     Dosage: 300 MILLIGRAM
     Route: 042
     Dates: start: 202008, end: 202010
  3. MESALAMINE [Suspect]
     Active Substance: MESALAMINE
     Indication: Colitis ulcerative
     Dosage: UNK
     Route: 048
     Dates: start: 2010, end: 2016
  4. MESALAMINE [Suspect]
     Active Substance: MESALAMINE
     Dosage: 4.8 GRAM, QD
     Route: 065
     Dates: start: 201810
  5. MESALAMINE [Suspect]
     Active Substance: MESALAMINE
     Dosage: 500 MILLIGRAM, BID
     Route: 054
     Dates: start: 201908
  6. PREDNISONE [Concomitant]
     Active Substance: PREDNISONE
     Dosage: UNK
     Dates: start: 201908, end: 201909

REACTIONS (15)
  - Colitis ulcerative [Unknown]
  - Haematochezia [Unknown]
  - Rectal haemorrhage [None]
  - Weight decreased [Recovered/Resolved]
  - Leukocytosis [Unknown]
  - C-reactive protein increased [Unknown]
  - Treatment failure [Unknown]
  - Weight increased [Unknown]
  - Diarrhoea [Unknown]
  - Abdominal pain [Unknown]
  - Hypotonia [Unknown]
  - Leukocytosis [Unknown]
  - Mucosal ulceration [Unknown]
  - Rectal tenesmus [Unknown]
  - Defaecation urgency [Unknown]

NARRATIVE: CASE EVENT DATE: 20190701
